FAERS Safety Report 24284557 (Version 1)
Quarter: 2024Q3

REPORT INFORMATION
  Report Type: Report from Study
  Country: PL (occurrence: PL)
  Receive Date: 20240905
  Receipt Date: 20240905
  Transmission Date: 20241017
  Serious: Yes (Life-Threatening, Hospitalization, Other)
  Sender: TEVA
  Company Number: PL-TEVA-VS-3238305

PATIENT
  Age: 14 Year
  Sex: Female

DRUGS (11)
  1. MICAFUNGIN [Suspect]
     Active Substance: MICAFUNGIN SODIUM
     Indication: Fungal sepsis
     Route: 065
  2. CYTARABINE [Suspect]
     Active Substance: CYTARABINE
     Indication: Acute myeloid leukaemia
     Dosage: AS A PART OF AIE IN AML-BFM-2019 CHEMOTHERAPY REGIMEN
     Route: 065
  3. CYTARABINE [Suspect]
     Active Substance: CYTARABINE
     Indication: Acute myeloid leukaemia
     Dosage: AS A PART OF HAM IN AML-BFM-2019 CHEMOTHERAPY REGIMEN
     Route: 065
  4. MITOXANTRONE [Suspect]
     Active Substance: MITOXANTRONE HYDROCHLORIDE
     Indication: Acute myeloid leukaemia
     Dosage: AS A PART OF HAM IN AML-BFM-2019 CHEMOTHERAPY REGIMEN
     Route: 065
  5. IDARUBICIN [Suspect]
     Active Substance: IDARUBICIN
     Indication: Acute myeloid leukaemia
     Dosage: AS A PART OF AIE IN AML-BFM-2019 CHEMOTHERAPY REGIMEN
     Route: 065
  6. FLUDARABINE [Concomitant]
     Active Substance: FLUDARABINE PHOSPHATE
     Indication: Acute myeloid leukaemia
     Dosage: AS A PART OF AML-BFM-2019 CHEMOTHERAPY REGIMEN
  7. CLOFARABINE [Concomitant]
     Active Substance: CLOFARABINE
     Indication: Acute myeloid leukaemia
     Dosage: AS A PART OF AML-BFM-2019 CHEMOTHERAPY REGIMEN
  8. GEMTUZUMAB OZOGAMICIN [Concomitant]
     Active Substance: GEMTUZUMAB OZOGAMICIN
     Indication: Acute myeloid leukaemia
     Dosage: AS A PART OF AML-BFM-2019 CHEMOTHERAPY REGIMEN
  9. ETOPOSIDE [Suspect]
     Active Substance: ETOPOSIDE
     Indication: Acute myeloid leukaemia
     Dosage: AS A PART OF AIE IN AML-BFM-2019 CHEMOTHERAPY REGIMEN
     Route: 065
  10. THIOGUANINE [Concomitant]
     Active Substance: THIOGUANINE
     Indication: Acute myeloid leukaemia
     Dosage: AS A PART OF AML-BFM-2019 CHEMOTHERAPY REGIMEN
  11. TRETINOIN [Concomitant]
     Active Substance: TRETINOIN
     Indication: Acute myeloid leukaemia
     Dosage: AS A PART OF AML-BFM-2019 CHEMOTHERAPY REGIMEN

REACTIONS (4)
  - Drug ineffective [Unknown]
  - Escherichia sepsis [Unknown]
  - Fungal sepsis [Recovering/Resolving]
  - Device related sepsis [Unknown]
